FAERS Safety Report 25734278 (Version 1)
Quarter: 2025Q3

REPORT INFORMATION
  Report Type: Spontaneous
  Country: CA (occurrence: CA)
  Receive Date: 20250828
  Receipt Date: 20250828
  Transmission Date: 20251021
  Serious: Yes (Other)
  Sender: STRIDES
  Company Number: CA-STRIDES ARCOLAB LIMITED-2025SP010966

PATIENT
  Age: 3 Decade
  Sex: Male

DRUGS (6)
  1. OLANZAPINE [Interacting]
     Active Substance: OLANZAPINE
     Indication: Schizophrenia
     Route: 065
  2. CLOZAPINE [Interacting]
     Active Substance: CLOZAPINE
     Indication: Schizophrenia
     Route: 065
  3. CLOZAPINE [Interacting]
     Active Substance: CLOZAPINE
     Route: 065
  4. CLOZAPINE [Interacting]
     Active Substance: CLOZAPINE
     Route: 065
  5. VALPROATE [Interacting]
     Active Substance: VALPROIC ACID
     Indication: Schizophrenia
     Route: 065
  6. LAMOTRIGINE [Concomitant]
     Active Substance: LAMOTRIGINE
     Indication: Schizophrenia
     Route: 065

REACTIONS (2)
  - Myocarditis [Recovered/Resolved]
  - Drug interaction [Unknown]
